FAERS Safety Report 25946534 (Version 1)
Quarter: 2025Q4

REPORT INFORMATION
  Report Type: Spontaneous
  Country: US (occurrence: US)
  Receive Date: 20251022
  Receipt Date: 20251022
  Transmission Date: 20260117
  Serious: No
  Sender: PACIRA
  Company Number: US-ORG100016242-2025000120

PATIENT
  Age: 63 Year
  Sex: Female

DRUGS (1)
  1. ZILRETTA [Suspect]
     Active Substance: TRIAMCINOLONE ACETONIDE
     Indication: Joint injection
     Dosage: NOT PROVIDED
     Route: 050
     Dates: start: 20241220, end: 20241220

REACTIONS (1)
  - Off label use [Unknown]
